FAERS Safety Report 25126297 (Version 1)
Quarter: 2025Q1

REPORT INFORMATION
  Report Type: Spontaneous
  Country: US (occurrence: US)
  Receive Date: 20250327
  Receipt Date: 20250327
  Transmission Date: 20250408
  Serious: No
  Sender: ABBVIE
  Company Number: US-ABBVIE-6193620

PATIENT
  Sex: Male

DRUGS (1)
  1. ALPHAGAN P [Suspect]
     Active Substance: BRIMONIDINE TARTRATE
     Indication: Ocular hypertension
     Route: 047
     Dates: start: 20240821

REACTIONS (7)
  - Hypersensitivity [Unknown]
  - Ocular hyperaemia [Unknown]
  - Ocular discomfort [Unknown]
  - Eye swelling [Unknown]
  - Swelling of eyelid [Unknown]
  - Abnormal sensation in eye [Unknown]
  - Eye irritation [Unknown]
